FAERS Safety Report 7608686-5 (Version None)
Quarter: 2011Q3

REPORT INFORMATION
  Report Type: 
  Country: None (occurrence: None)
  Receive Date: 20110706
  Receipt Date: 20110621
  Transmission Date: 20111222
  Serious: Yes (Life-Threatening, Hospitalization, Congenital Anomaly)
  Sender: FDA-Public Use
  Company Number: 2011MA007879

PATIENT
  Age: 1 Decade
  Sex: Male

DRUGS (1)
  1. FLUOXETINE [Suspect]
     Indication: PRODUCT USED FOR UNKNOWN INDICATION
     Dosage: 20 MG, QD

REACTIONS (17)
  - MATERNAL DRUGS AFFECTING FOETUS [None]
  - HYPOGLYCAEMIA NEONATAL [None]
  - CYANOSIS NEONATAL [None]
  - ATRIAL SEPTAL DEFECT [None]
  - HEMIVERTEBRA [None]
  - SPINAL DEFORMITY [None]
  - TRICUSPID VALVE INCOMPETENCE [None]
  - FOETAL HYPOKINESIA [None]
  - FACIAL ASYMMETRY [None]
  - RETINAL DISORDER [None]
  - CARDIAC ANEURYSM [None]
  - CAESAREAN SECTION [None]
  - VENTRICULAR SEPTAL DEFECT [None]
  - FOETAL HEART RATE ABNORMAL [None]
  - MICROTIA [None]
  - MICROGENIA [None]
  - PULMONARY ARTERIAL PRESSURE ABNORMAL [None]
